FAERS Safety Report 21049318 (Version 1)
Quarter: 2022Q3

REPORT INFORMATION
  Report Type: 
  Country: US (occurrence: US)
  Receive Date: 20220706
  Receipt Date: 20220706
  Transmission Date: 20221026
  Serious: Yes (Death)
  Sender: FDA-Public Use
  Company Number: US-MannKind Corporation-2022MK000214

PATIENT
  Age: 78 Year
  Sex: Female

DRUGS (1)
  1. AFREZZA [Suspect]
     Active Substance: INSULIN HUMAN
     Indication: Diabetes mellitus
     Dates: start: 20220616, end: 20220618

REACTIONS (1)
  - Small intestinal obstruction [None]

NARRATIVE: CASE EVENT DATE: 20220618
